FAERS Safety Report 7227026-7 (Version None)
Quarter: 2011Q1

REPORT INFORMATION
  Report Type: 
  Country: None (occurrence: None)
  Receive Date: 20110114
  Receipt Date: 20110103
  Transmission Date: 20110831
  Serious: Yes (Other)
  Sender: FDA-Public Use
  Company Number: US-JNJCH-2011000784

PATIENT
  Age: 41 Year
  Sex: Female

DRUGS (1)
  1. VISINE EYE DROPS [Suspect]
     Indication: OCULAR HYPERAEMIA
     Dosage: TEXT:ONE DROP PER EYE ONE TO TWO TIMES DAILY
     Route: 047
     Dates: start: 20100101, end: 20101213

REACTIONS (3)
  - EYE PAIN [None]
  - OPTIC NERVE DISORDER [None]
  - HEADACHE [None]
